FAERS Safety Report 13413395 (Version 2)
Quarter: 2017Q4

REPORT INFORMATION
  Report Type: Spontaneous
  Country: US (occurrence: US)
  Receive Date: 20170406
  Receipt Date: 20171123
  Transmission Date: 20180320
  Serious: No
  Sender: FDA-Public Use
  Company Number: US-JNJFOC-20170312445

PATIENT
  Age: 18 Year
  Sex: Male

DRUGS (6)
  1. RISPERIDONE. [Suspect]
     Active Substance: RISPERIDONE
     Indication: IMPULSE-CONTROL DISORDER
     Dosage: IN VARYING DOSES OF 2 MG AND 3 MG
     Route: 048
     Dates: start: 20080730, end: 20120807
  2. RISPERDAL [Suspect]
     Active Substance: RISPERIDONE
     Indication: IMPULSE-CONTROL DISORDER
     Dosage: IN VARYING DOSES OF 1 MG, 2 MG AND 3 MG
     Route: 048
     Dates: start: 20030512, end: 20080602
  3. RISPERIDONE. [Suspect]
     Active Substance: RISPERIDONE
     Indication: SOCIAL ANXIETY DISORDER
     Dosage: IN VARYING DOSES OF 2 MG AND 3 MG
     Route: 048
     Dates: start: 20080730, end: 20120807
  4. RISPERDAL [Suspect]
     Active Substance: RISPERIDONE
     Indication: SOCIAL ANXIETY DISORDER
     Dosage: IN VARYING DOSES OF 1 MG, 2 MG AND 3 MG
     Route: 048
     Dates: start: 20030512, end: 20080602
  5. RISPERDAL [Suspect]
     Active Substance: RISPERIDONE
     Indication: SOCIAL ANXIETY DISORDER
     Route: 048
     Dates: end: 20120807
  6. RISPERDAL [Suspect]
     Active Substance: RISPERIDONE
     Indication: IMPULSE-CONTROL DISORDER
     Route: 048
     Dates: end: 20120807

REACTIONS (4)
  - Gynaecomastia [Unknown]
  - Off label use [Unknown]
  - Emotional disorder [Unknown]
  - Product use in unapproved indication [Unknown]

NARRATIVE: CASE EVENT DATE: 20030512
